FAERS Safety Report 13354759 (Version 9)
Quarter: 2017Q3

REPORT INFORMATION
  Report Type: Spontaneous
  Country: US (occurrence: US)
  Receive Date: 20170321
  Receipt Date: 20170810
  Transmission Date: 20171127
  Serious: Yes (Congenital Anomaly, Other)
  Sender: FDA-Public Use
  Company Number: PHEH2017US007968

PATIENT
  Sex: Male

DRUGS (2)
  1. ZOFRAN [Suspect]
     Active Substance: ONDANSETRON HYDROCHLORIDE
     Indication: FOETAL EXPOSURE DURING PREGNANCY
     Route: 064
  2. ONDANSETRON [Suspect]
     Active Substance: ONDANSETRON
     Indication: FOETAL EXPOSURE DURING PREGNANCY
     Dosage: MOTHER DOSE: 04 MG, Q6H, 04 MG, Q8H, 08 MG, Q6H, 04 MG, Q6H
     Route: 064

REACTIONS (39)
  - Cleft palate [Unknown]
  - Foetal exposure during pregnancy [Unknown]
  - Otorrhoea [Recovered/Resolved]
  - Eustachian tube dysfunction [Unknown]
  - Selective eating disorder [Unknown]
  - Underweight [Unknown]
  - Thermal burn [Unknown]
  - Abdominal pain [Unknown]
  - Hypoventilation [Unknown]
  - Dermatitis contact [Unknown]
  - Pharyngitis [Unknown]
  - Vomiting [Unknown]
  - Dacryostenosis congenital [Unknown]
  - Conductive deafness [Recovered/Resolved]
  - Pneumonia [Unknown]
  - Sleep apnoea syndrome [Unknown]
  - Middle ear effusion [Unknown]
  - Ear infection [Unknown]
  - Disorganised speech [Unknown]
  - Upper respiratory tract infection [Unknown]
  - Snoring [Unknown]
  - Developmental delay [Unknown]
  - Eye injury [Unknown]
  - Diarrhoea [Unknown]
  - Otitis media chronic [Recovered/Resolved]
  - Jaundice neonatal [Unknown]
  - Dysphonia [Unknown]
  - Animal bite [Unknown]
  - Cough [Unknown]
  - Rhinorrhoea [Unknown]
  - Dermatitis diaper [Unknown]
  - Viral infection [Unknown]
  - Deafness [Unknown]
  - Speech disorder [Unknown]
  - Dysarthria [Unknown]
  - Nasopharyngitis [Unknown]
  - Gastroenteritis [Unknown]
  - Ear pain [Unknown]
  - Rash [Unknown]
